FAERS Safety Report 14776717 (Version 1)
Quarter: 2018Q2

REPORT INFORMATION
  Report Type: Report from Study
  Country: FR (occurrence: FR)
  Receive Date: 20180419
  Receipt Date: 20180419
  Transmission Date: 20180711
  Serious: Yes (Other)
  Sender: FDA-Public Use
  Company Number: FR-ACCORD-065608

PATIENT
  Age: 46 Year
  Sex: Male

DRUGS (3)
  1. TACROLIMUS. [Suspect]
     Active Substance: TACROLIMUS
     Indication: RENAL TRANSPLANT
     Dosage: ALSO RECEIVED AT 8MG ON 18-MAY, 8.5MG ON 24-MAY, 8MG ON 03-JUN, 11MG ON 14-JUN, 12MG ON 24-AUG
     Dates: start: 20170628
  2. CORTANCYL [Concomitant]
     Active Substance: PREDNISONE
     Indication: IMMUNOSUPPRESSION
     Dosage: 15 (UNIT NOT PROVIDED), ONCE DAILY
     Dates: start: 20170628, end: 20170704
  3. CELLCEPT [Concomitant]
     Active Substance: MYCOPHENOLATE MOFETIL\MYCOPHENOLATE MOFETIL HYDROCHLORIDE
     Indication: IMMUNOSUPPRESSION
     Dosage: 1000 (UNIT NOT PROVIDED), ONCE DAILY
     Dates: start: 20170623, end: 20170824

REACTIONS (2)
  - Hypercholesterolaemia [Not Recovered/Not Resolved]
  - Pyelonephritis [Recovered/Resolved]

NARRATIVE: CASE EVENT DATE: 20170809
